FAERS Safety Report 20735264 (Version 1)
Quarter: 2022Q2

REPORT INFORMATION
  Report Type: Spontaneous
  Country: US (occurrence: None)
  Receive Date: 20220420
  Receipt Date: 20220420
  Transmission Date: 20220721
  Serious: Yes (Hospitalization)
  Sender: FDA-Public Use
  Company Number: None

PATIENT
  Sex: Female
  Weight: 95.3 kg

DRUGS (1)
  1. EVUSHELD [Suspect]
     Active Substance: CILGAVIMAB\TIXAGEVIMAB
     Dates: start: 20220415, end: 20220415

REACTIONS (6)
  - Erythema [None]
  - Erythema [None]
  - Peripheral swelling [None]
  - Swelling face [None]
  - Pruritus [None]
  - Throat irritation [None]

NARRATIVE: CASE EVENT DATE: 20220415
